FAERS Safety Report 18048506 (Version 1)
Quarter: 2020Q3

REPORT INFORMATION
  Report Type: Spontaneous
  Country: CA (occurrence: CA)
  Receive Date: 20200720
  Receipt Date: 20200720
  Transmission Date: 20201103
  Serious: No
  Sender: FDA-Public Use
  Company Number: None

PATIENT
  Age: 37 Year
  Sex: Female
  Weight: 55 kg

DRUGS (6)
  1. ELETRIPTAN. [Concomitant]
     Active Substance: ELETRIPTAN
  2. MAGNESIUM [Concomitant]
     Active Substance: MAGNESIUM
  3. DICLOFENAC [Concomitant]
     Active Substance: DICLOFENAC
  4. CLONAZEPAM. [Concomitant]
     Active Substance: CLONAZEPAM
  5. EMGALITY [Suspect]
     Active Substance: GALCANEZUMAB-GNLM
     Indication: MIGRAINE PROPHYLAXIS
     Dosage: ?          QUANTITY:1 INJECTION(S);OTHER FREQUENCY:ONCE MONTHLY;OTHER ROUTE:INJECTED IN THE FAT?
     Dates: start: 20200614
  6. MODAFINIL. [Concomitant]
     Active Substance: MODAFINIL

REACTIONS (4)
  - Acne cystic [None]
  - Abdominal pain [None]
  - Diarrhoea [None]
  - Constipation [None]

NARRATIVE: CASE EVENT DATE: 20200716
